FAERS Safety Report 12487005 (Version 1)
Quarter: 2016Q2

REPORT INFORMATION
  Report Type: Spontaneous
  Country: US (occurrence: None)
  Receive Date: 20160621
  Receipt Date: 20160621
  Transmission Date: 20160815
  Serious: No
  Sender: FDA-Public Use
  Company Number: None

PATIENT
  Age: 51 Year
  Sex: Female

DRUGS (3)
  1. MYCOPHENOLIC TAB 360MG DR [Suspect]
     Active Substance: MYCOPHENOLIC ACID
     Indication: PANCREAS TRANSPLANT
  2. MYCOPHENOLIC TAB 360MG DR [Suspect]
     Active Substance: MYCOPHENOLIC ACID
     Indication: RENAL TRANSPLANT
  3. MYCOPHENOLIC TAB 360MG DR [Suspect]
     Active Substance: MYCOPHENOLIC ACID
     Indication: POSTOPERATIVE CARE

REACTIONS (2)
  - Gastrointestinal disorder [None]
  - Diarrhoea [None]

NARRATIVE: CASE EVENT DATE: 20160409
